FAERS Safety Report 5449854-0 (Version None)
Quarter: 2007Q3

REPORT INFORMATION
  Report Type: 
  Country: None (occurrence: None)
  Receive Date: 20070904
  Receipt Date: 20070821
  Transmission Date: 20080115
  Serious: Yes (Hospitalization)
  Sender: FDA-Public Use
  Company Number: WSDF_00666

PATIENT
  Age: 2 Month
  Sex: Female
  Weight: 6 kg

DRUGS (1)
  1. WINRHO SDF [Suspect]
     Indication: IDIOPATHIC THROMBOCYTOPENIC PURPURA
     Dosage: 50 UG/KG
     Dates: start: 20070720, end: 20070720

REACTIONS (7)
  - COOMBS TEST POSITIVE [None]
  - HAEMOGLOBIN DECREASED [None]
  - HAEMOGLOBINURIA [None]
  - INTRAVASCULAR HAEMOLYSIS [None]
  - PALLOR [None]
  - PYREXIA [None]
  - URINE COLOUR ABNORMAL [None]
